FAERS Safety Report 6108825-1 (Version None)
Quarter: 2009Q1

REPORT INFORMATION
  Report Type: 
  Country: None (occurrence: None)
  Receive Date: 20090310
  Receipt Date: 20090304
  Transmission Date: 20090719
  Serious: Yes (Hospitalization, Congenital Anomaly)
  Sender: FDA-Public Use
  Company Number: FR-BRISTOL-MYERS SQUIBB COMPANY-13375589

PATIENT
  Age: 25 Year
  Sex: Female
  Weight: 56 kg

DRUGS (6)
  1. SUSTIVA [Suspect]
     Indication: HIV INFECTION
     Route: 048
     Dates: start: 20050523, end: 20050908
  2. VIDEX [Suspect]
     Dates: start: 20050523, end: 20050908
  3. COMBIVIR [Suspect]
     Indication: HIV INFECTION
     Dates: start: 20050908
  4. KALETRA [Suspect]
     Indication: HIV INFECTION
     Dates: start: 20050908
  5. EMTRIVA [Concomitant]
     Dates: start: 20050523
  6. VIRAMUNE [Concomitant]
     Dosage: 200 TO 400 MG/DAY
     Dates: start: 20050620

REACTIONS (5)
  - ABORTION INDUCED [None]
  - INSOMNIA [None]
  - PREGNANCY [None]
  - SPINA BIFIDA [None]
  - VERTIGO [None]
